FAERS Safety Report 15401277 (Version 1)
Quarter: 2018Q3

REPORT INFORMATION
  Report Type: Spontaneous
  Country: US (occurrence: US)
  Receive Date: 20180919
  Receipt Date: 20180919
  Transmission Date: 20181010
  Serious: No
  Sender: FDA-Public Use
  Company Number: US-SA-2018SA260987

PATIENT
  Age: 62 Year
  Sex: Female

DRUGS (4)
  1. FUROSEMIDE. [Concomitant]
     Active Substance: FUROSEMIDE
  2. VENTOLINE [SALBUTAMOL] [Concomitant]
  3. SPIRIVA [Concomitant]
     Active Substance: TIOTROPIUM BROMIDE MONOHYDRATE
  4. DUPIXENT [Suspect]
     Active Substance: DUPILUMAB
     Indication: DERMATITIS ATOPIC
     Dosage: 300 MG, QOW
     Route: 058
     Dates: start: 20171114

REACTIONS (1)
  - Drug dose omission [Unknown]
